FAERS Safety Report 8530712-X (Version None)
Quarter: 2012Q3

REPORT INFORMATION
  Report Type: 
  Country: None (occurrence: None)
  Receive Date: 20120723
  Receipt Date: 20120710
  Transmission Date: 20120928
  Serious: Yes (Hospitalization)
  Sender: FDA-Public Use
  Company Number: US-ROCHE-1086775

PATIENT
  Sex: Female
  Weight: 72.186 kg

DRUGS (1)
  1. XELODA [Suspect]
     Indication: COLON CANCER
     Route: 048
     Dates: start: 20120412, end: 20120619

REACTIONS (2)
  - CATHETER PLACEMENT [None]
  - STENT PLACEMENT [None]
